FAERS Safety Report 24978901 (Version 1)
Quarter: 2025Q1

REPORT INFORMATION
  Report Type: Spontaneous
  Country: BE (occurrence: BE)
  Receive Date: 20250218
  Receipt Date: 20250218
  Transmission Date: 20250409
  Serious: Yes (Other)
  Sender: AUROBINDO
  Company Number: BE-FAMHP-DHH-N2025-123791

PATIENT
  Age: 18 Year
  Sex: Male

DRUGS (1)
  1. ACETAMINOPHEN [Suspect]
     Active Substance: ACETAMINOPHEN
     Indication: Intentional self-injury
     Route: 048

REACTIONS (3)
  - Vomiting [Recovered/Resolved]
  - Intentional overdose [Recovered/Resolved]
  - Product use issue [Recovered/Resolved]
